FAERS Safety Report 13771286 (Version 1)
Quarter: 2017Q3

REPORT INFORMATION
  Report Type: Spontaneous
  Country: US (occurrence: US)
  Receive Date: 20170720
  Receipt Date: 20170720
  Transmission Date: 20171127
  Serious: No
  Sender: FDA-Public Use
  Company Number: None

PATIENT
  Age: 85 Year
  Sex: Male
  Weight: 163.6 kg

DRUGS (3)
  1. ASPIRIN. [Suspect]
     Active Substance: ASPIRIN
     Indication: CARDIAC OPERATION
     Route: 048
     Dates: start: 20160109, end: 20170621
  2. ASPIRIN. [Suspect]
     Active Substance: ASPIRIN
     Indication: ATRIAL FIBRILLATION
     Route: 048
     Dates: start: 20160109, end: 20170621
  3. DABIGATRAN [Suspect]
     Active Substance: DABIGATRAN
     Indication: ATRIAL FIBRILLATION
     Route: 048
     Dates: start: 20160316, end: 20170621

REACTIONS (7)
  - Vomiting [None]
  - Asthenia [None]
  - Blood pressure increased [None]
  - Abdominal pain [None]
  - Platelet count decreased [None]
  - Haemoglobin decreased [None]
  - Gastritis [None]

NARRATIVE: CASE EVENT DATE: 20170621
